FAERS Safety Report 7558294-X (Version None)
Quarter: 2011Q2

REPORT INFORMATION
  Report Type: 
  Country: None (occurrence: None)
  Receive Date: 20110620
  Receipt Date: 20110609
  Transmission Date: 20111010
  Serious: Yes (Hospitalization)
  Sender: FDA-Public Use
  Company Number: IL-TEVA-286506ISR

PATIENT
  Sex: Male
  Weight: 69.1 kg

DRUGS (2)
  1. MERCAPTOPURINE [Suspect]
     Indication: CROHN'S DISEASE
     Dosage: MERCAPTOPURINE 40MG OR 80MG OR PURINETHOL
  2. PURINETHOL [Suspect]
     Indication: CROHN'S DISEASE
     Dosage: MERCAPTOPURINE 40MG OR 80MG OR PURINETHOL

REACTIONS (2)
  - ABDOMINAL PAIN [None]
  - VOMITING [None]
